FAERS Safety Report 25866076 (Version 1)
Quarter: 2025Q3

REPORT INFORMATION
  Report Type: Report from Study
  Country: TH (occurrence: TH)
  Receive Date: 20250930
  Receipt Date: 20250930
  Transmission Date: 20251020
  Serious: Yes (Other)
  Sender: ALEXION PHARMACEUTICALS
  Company Number: TH-AstraZeneca-CH-00959567A

PATIENT
  Age: 68 Year
  Sex: Male

DRUGS (1)
  1. OSIMERTINIB [Suspect]
     Active Substance: OSIMERTINIB
     Indication: Non-small cell lung cancer
     Dates: start: 20250420

REACTIONS (13)
  - Lung carcinoma cell type unspecified stage I [Unknown]
  - Metastases to meninges [Unknown]
  - Metastases to bone marrow [Unknown]
  - Hemiplegia [Unknown]
  - Back pain [Unknown]
  - Metastases to central nervous system [Unknown]
  - Herpes zoster [Unknown]
  - Musculoskeletal chest pain [Unknown]
  - Faeces hard [Unknown]
  - Anal fistula [Recovering/Resolving]
  - Haematochezia [Unknown]
  - Poliomyelitis [Unknown]
  - Metastases to liver [Unknown]

NARRATIVE: CASE EVENT DATE: 20250819
